FAERS Safety Report 19244252 (Version 1)
Quarter: 2021Q2

REPORT INFORMATION
  Report Type: Spontaneous
  Country: NL (occurrence: NL)
  Receive Date: 20210511
  Receipt Date: 20210511
  Transmission Date: 20210717
  Serious: Yes (Hospitalization)
  Sender: FDA-Public Use
  Company Number: NL-PFIZER INC-2021485346

PATIENT
  Age: 43 Year
  Sex: Female

DRUGS (3)
  1. LEUPRORELINE [Suspect]
     Active Substance: LEUPROLIDE
     Dosage: 11.25 MG
  2. LETROZOLE. [Suspect]
     Active Substance: LETROZOLE
     Dosage: 2.5 MG
  3. PALBOCICLIB [Suspect]
     Active Substance: PALBOCICLIB
     Dosage: 125 MG
     Dates: start: 20180516, end: 20180901

REACTIONS (3)
  - Paraesthesia [Unknown]
  - Hypoaesthesia [Unknown]
  - Abdominal discomfort [Unknown]

NARRATIVE: CASE EVENT DATE: 20180607
